FAERS Safety Report 20333548 (Version 2)
Quarter: 2022Q1

REPORT INFORMATION
  Report Type: Spontaneous
  Country: US (occurrence: US)
  Receive Date: 20220113
  Receipt Date: 20220117
  Transmission Date: 20220423
  Serious: No
  Sender: FDA-Public Use
  Company Number: US-BoehringerIngelheim-2022-BI-107297

PATIENT
  Sex: Female

DRUGS (2)
  1. CATAPRES-TTS [Suspect]
     Active Substance: CLONIDINE
     Indication: Product used for unknown indication
     Route: 062
  2. CATAPRES-TTS [Suspect]
     Active Substance: CLONIDINE

REACTIONS (1)
  - Hypotension [Unknown]
